FAERS Safety Report 4937310-5 (Version None)
Quarter: 2006Q1

REPORT INFORMATION
  Report Type: 
  Country: None (occurrence: None)
  Receive Date: 20060309
  Receipt Date: 20060217
  Transmission Date: 20060701
  Serious: Yes (Life-Threatening)
  Sender: FDA-Public Use
  Company Number: GB-JNJFOC-20060301049

PATIENT
  Age: 68 Year
  Sex: Male

DRUGS (5)
  1. TRAMADOL HCL [Suspect]
     Indication: PAIN
     Route: 048
  2. ATENOLOL [Concomitant]
     Indication: HYPERTENSION
     Route: 048
  3. BENDROFLUMETHIAZIDE [Concomitant]
     Indication: HYPERTENSION
     Route: 048
  4. DOXAZOSIN [Concomitant]
     Indication: HYPERTENSION
     Route: 048
  5. LISINOPRIL [Concomitant]
     Indication: HYPERTENSION
     Route: 048

REACTIONS (1)
  - SWOLLEN TONGUE [None]
